FAERS Safety Report 9413310 (Version 1)
Quarter: 2013Q3

REPORT INFORMATION
  Report Type: Spontaneous
  Country: US (occurrence: None)
  Receive Date: 20130718
  Receipt Date: 20130718
  Transmission Date: 20140515
  Serious: Yes (Death)
  Sender: FDA-Public Use
  Company Number: EUS-2013-00394

PATIENT
  Age: 58 Year
  Sex: Male
  Weight: 61.8 kg

DRUGS (1)
  1. QUADRAMET [Suspect]
     Indication: PROSTATE CANCER
     Dosage: (124 MCI (124 MCI)
     Dates: start: 20120118, end: 20120118

REACTIONS (1)
  - Cardiac arrest [None]
